FAERS Safety Report 8355985 (Version 4)
Quarter: 2014Q2

REPORT INFORMATION
  Report Type: Spontaneous
  Country: US (occurrence: US)
  Receive Date: 20120126
  Receipt Date: 20140411
  Transmission Date: 20141212
  Serious: Yes (Hospitalization, Other)
  Sender: FDA-Public Use
  Company Number: US-ACTELION-A-NJ2012-59841

PATIENT
  Age: 42 Year
  Sex: Female
  Weight: 91.61 kg

DRUGS (9)
  1. VELETRI [Suspect]
     Indication: PULMONARY ARTERIAL HYPERTENSION
     Dosage: 27.5 NG/KG, PER MIN
     Route: 041
     Dates: start: 20100426
  2. SILDENAFIL [Concomitant]
  3. TYVASO [Concomitant]
  4. ALPRAZOLAM [Concomitant]
  5. FLUTICASONE W/SALMETEROL [Concomitant]
  6. PROMETHAZINE [Concomitant]
  7. TRAMADOL [Concomitant]
  8. NORETHINDRONE [Concomitant]
  9. FEXOFENADINE [Concomitant]

REACTIONS (2)
  - Liver transplant [Recovering/Resolving]
  - Thrombocytopenia [Recovering/Resolving]
